FAERS Safety Report 6179804-3 (Version None)
Quarter: 2009Q2

REPORT INFORMATION
  Report Type: 
  Country: None (occurrence: None)
  Receive Date: 20090505
  Receipt Date: 20090423
  Transmission Date: 20091009
  Serious: Yes (Other)
  Sender: FDA-Public Use
  Company Number: US-JNJCH-2009011616

PATIENT
  Age: 65 Year
  Sex: Male
  Weight: 113.4 kg

DRUGS (1)
  1. ROLAIDS [Suspect]
     Indication: DRUG USE FOR UNKNOWN INDICATION
     Dosage: TEXT:UNSPECIFIED
     Route: 048

REACTIONS (1)
  - NEPHROLITHIASIS [None]
